FAERS Safety Report 7190755-8 (Version None)
Quarter: 2010Q4

REPORT INFORMATION
  Report Type: 
  Country: None (occurrence: None)
  Receive Date: 20101223
  Receipt Date: 20101202
  Transmission Date: 20110411
  Serious: Yes (Other)
  Sender: FDA-Public Use
  Company Number: US-ROCHE-747572

PATIENT
  Sex: Female

DRUGS (2)
  1. CELLCEPT [Suspect]
     Route: 048
     Dates: start: 20050101
  2. PROGRAF [Concomitant]

REACTIONS (2)
  - ENDOTRACHEAL INTUBATION [None]
  - SEPSIS [None]
